FAERS Safety Report 26126700 (Version 1)
Quarter: 2025Q4

REPORT INFORMATION
  Report Type: Spontaneous
  Country: CN (occurrence: CN)
  Receive Date: 20251205
  Receipt Date: 20251205
  Transmission Date: 20260118
  Serious: Yes (Hospitalization)
  Sender: COHERUS
  Company Number: CN-SHANGHAI JUNSHI BIOSCIENCES CO., LTD.-CN2025016746

PATIENT

DRUGS (3)
  1. TORIPALIMAB [Suspect]
     Active Substance: TORIPALIMAB
     Indication: Neoplasm malignant
     Dosage: 240 MG, Q3W, D1
     Route: 041
     Dates: start: 20251103, end: 20251103
  2. XGEVA [Concomitant]
     Active Substance: DENOSUMAB
     Indication: Neoplasm malignant
     Dosage: 120 MG, Q3W, D1
     Route: 058
     Dates: start: 20251103, end: 20251103
  3. PACLITAXEL [Concomitant]
     Active Substance: PACLITAXEL
     Indication: Neoplasm malignant
     Dosage: 300 MG, Q3W, D1
     Route: 041
     Dates: start: 20251103, end: 20251103

REACTIONS (1)
  - Renal failure [Unknown]

NARRATIVE: CASE EVENT DATE: 20251119
